FAERS Safety Report 6310160-3 (Version None)
Quarter: 2009Q3

REPORT INFORMATION
  Report Type: 
  Country: None (occurrence: None)
  Receive Date: 20090814
  Receipt Date: 20090806
  Transmission Date: 20100115
  Serious: Yes (Hospitalization)
  Sender: FDA-Public Use
  Company Number: JP-BRISTOL-MYERS SQUIBB COMPANY-14739635

PATIENT
  Age: 56 Year
  Sex: Male

DRUGS (8)
  1. ABILIFY [Suspect]
     Indication: SCHIZOPHRENIA
     Dosage: 0.1 PERCENT
     Route: 048
     Dates: start: 20090708, end: 20090804
  2. HIRNAMIN [Concomitant]
  3. CONTOMIN [Concomitant]
  4. BIPERIDEN HYDROCHLORIDE TAB [Concomitant]
  5. MAGLAX [Concomitant]
  6. GASMOTIN [Concomitant]
  7. SENNOSIDE [Concomitant]
  8. LIPITOR [Concomitant]
     Dosage: FORM TABLET.

REACTIONS (2)
  - FALL [None]
  - ULCER HAEMORRHAGE [None]
